FAERS Safety Report 8892175 (Version 1)
Quarter: 2012Q4

REPORT INFORMATION
  Report Type: Spontaneous
  Country: US (occurrence: None)
  Receive Date: 20121031
  Receipt Date: 20121031
  Transmission Date: 20130627
  Serious: Yes (Other)
  Sender: FDA-Public Use
  Company Number: TPA2012A08257

PATIENT
  Sex: Female

DRUGS (1)
  1. ACTOPLUS MET [Suspect]

REACTIONS (2)
  - Knee arthroplasty [None]
  - Cataract operation [None]
